FAERS Safety Report 19449545 (Version 1)
Quarter: 2021Q2

REPORT INFORMATION
  Report Type: Report from Study
  Country: GB (occurrence: GB)
  Receive Date: 20210622
  Receipt Date: 20210622
  Transmission Date: 20210717
  Serious: Yes (Hospitalization, Other)
  Sender: FDA-Public Use
  Company Number: GB-TAKEDA-2021TEU005513

PATIENT
  Age: 8 Year
  Sex: Female
  Weight: 23.35 kg

DRUGS (22)
  1. LANSOPRAZOLE. [Suspect]
     Active Substance: LANSOPRAZOLE
     Indication: PRODUCT USED FOR UNKNOWN INDICATION
     Dosage: UNK
     Route: 065
  2. EVEROLIMUS. [Suspect]
     Active Substance: EVEROLIMUS
     Dosage: 5 MILLIGRAM, QD
     Route: 048
  3. PARACETAMOL [Suspect]
     Active Substance: ACETAMINOPHEN
     Indication: PRODUCT USED FOR UNKNOWN INDICATION
     Dosage: UNK UNK, QD
     Route: 048
  4. EVEROLIMUS. [Suspect]
     Active Substance: EVEROLIMUS
     Dosage: 2.5 MILLIGRAM, QD
     Route: 048
  5. DEXAMETHASONE. [Suspect]
     Active Substance: DEXAMETHASONE
     Dosage: 7 MILLIGRAM, QD
     Route: 048
  6. RANITIDINE. [Suspect]
     Active Substance: RANITIDINE
     Indication: GASTROOESOPHAGEAL REFLUX DISEASE
     Dosage: UNK UNK, QD
     Route: 048
  7. EVEROLIMUS. [Suspect]
     Active Substance: EVEROLIMUS
     Dosage: UNK
     Route: 048
     Dates: start: 20190717, end: 20191014
  8. VANDETANIB. [Suspect]
     Active Substance: VANDETANIB
     Dosage: 65 MILLIGRAM/SQ. METER, QD
     Route: 048
     Dates: start: 20200316, end: 20200420
  9. EVEROLIMUS. [Suspect]
     Active Substance: EVEROLIMUS
     Indication: BRAIN STEM GLIOMA
     Dosage: 5 MILLIGRAM, QD
     Route: 048
  10. DEXAMETHASONE. [Suspect]
     Active Substance: DEXAMETHASONE
     Indication: PRODUCT USED FOR UNKNOWN INDICATION
     Dosage: UNK
     Route: 065
  11. DEXAMETHASONE. [Suspect]
     Active Substance: DEXAMETHASONE
     Dosage: 1.6 MILLIGRAM, QD
     Route: 048
  12. RANITIDINE. [Suspect]
     Active Substance: RANITIDINE
     Indication: PRODUCT USED FOR UNKNOWN INDICATION
     Dosage: 50 MILLIGRAM, BID
     Route: 065
     Dates: start: 20191018
  13. VANDETANIB. [Suspect]
     Active Substance: VANDETANIB
     Indication: BRAIN STEM GLIOMA
     Dosage: 100 MILLIGRAM, QOD
     Route: 048
     Dates: start: 20191009, end: 20191014
  14. VANDETANIB. [Suspect]
     Active Substance: VANDETANIB
     Dosage: 100 MILLIGRAM, QOD
     Route: 048
     Dates: start: 20191018, end: 20200207
  15. COTRIMOXAZOLE [Concomitant]
     Active Substance: SULFAMETHOXAZOLE\TRIMETHOPRIM
     Dosage: 720 MILLIGRAM, QD
     Route: 065
  16. DEXAMETHASONE. [Concomitant]
     Active Substance: DEXAMETHASONE
     Dosage: UNK
     Dates: start: 20191101, end: 20200221
  17. EVEROLIMUS. [Suspect]
     Active Substance: EVEROLIMUS
     Dosage: 2.5 MILLIGRAM, QD
     Route: 048
  18. EVEROLIMUS. [Suspect]
     Active Substance: EVEROLIMUS
     Dosage: UNK UNK, QD
     Route: 048
     Dates: start: 20191001
  19. VANDETANIB. [Suspect]
     Active Substance: VANDETANIB
     Dosage: 100 MILLIGRAM, QOD
     Route: 048
     Dates: start: 20200212, end: 20200302
  20. DEXAMETHASONE. [Suspect]
     Active Substance: DEXAMETHASONE
     Dosage: 3.5 MILLIGRAM, QD
     Route: 048
  21. DEXAMETHASONE. [Suspect]
     Active Substance: DEXAMETHASONE
     Dosage: 9.2 MILLIGRAM, QD
     Route: 048
     Dates: start: 20200207, end: 20200221
  22. LOPERAMIDE [Suspect]
     Active Substance: LOPERAMIDE
     Indication: DIARRHOEA
     Dosage: 2 MILLIGRAM
     Route: 065

REACTIONS (24)
  - Ocular hyperaemia [Recovered/Resolved]
  - Stomatitis [Recovered/Resolved]
  - Hemiparesis [Recovered/Resolved]
  - Hypertension [Recovered/Resolved]
  - Ataxia [Recovered/Resolved]
  - Product use in unapproved indication [Unknown]
  - Brain stem glioma [Unknown]
  - Blood cholesterol increased [Not Recovered/Not Resolved]
  - Flatulence [Recovered/Resolved]
  - White blood cell count decreased [Not Recovered/Not Resolved]
  - Hypophagia [Not Recovered/Not Resolved]
  - Disease progression [Unknown]
  - Hypophosphataemia [Recovered/Resolved]
  - Electrocardiogram QT prolonged [Recovered/Resolved]
  - Reflux gastritis [Recovered/Resolved]
  - Alanine aminotransferase increased [Recovered/Resolved]
  - Lymphocyte count decreased [Not Recovered/Not Resolved]
  - Myoclonus [Recovered/Resolved]
  - Malignant neoplasm progression [Unknown]
  - Facial paralysis [Recovered/Resolved]
  - Neutrophil count decreased [Recovered/Resolved]
  - Blood creatinine increased [Unknown]
  - Abdominal distension [Recovered/Resolved]
  - Blood triglycerides increased [Unknown]

NARRATIVE: CASE EVENT DATE: 20190111
